FAERS Safety Report 20997089 (Version 3)
Quarter: 2022Q3

REPORT INFORMATION
  Report Type: Report from Study
  Country: US (occurrence: US)
  Receive Date: 20220623
  Receipt Date: 20220804
  Transmission Date: 20221027
  Serious: No
  Sender: FDA-Public Use
  Company Number: US-JNJFOC-20220633102

PATIENT
  Age: 22 Year
  Sex: Male
  Weight: 63.560 kg

DRUGS (3)
  1. INFLIXIMAB [Suspect]
     Active Substance: INFLIXIMAB
     Indication: Inflammatory bowel disease
     Route: 041
     Dates: start: 20110527, end: 20111007
  2. ENTYVIO [Concomitant]
     Active Substance: VEDOLIZUMAB
     Dates: start: 20160406
  3. ENTYVIO [Concomitant]
     Active Substance: VEDOLIZUMAB
     Dates: start: 20211115

REACTIONS (3)
  - Concussion [Recovered/Resolved]
  - Pneumothorax [Recovered/Resolved]
  - Psoriasis [Recovered/Resolved]

NARRATIVE: CASE EVENT DATE: 20220101
